FAERS Safety Report 7275703-4 (Version None)
Quarter: 2011Q1

REPORT INFORMATION
  Report Type: 
  Country: None (occurrence: None)
  Receive Date: 20110204
  Receipt Date: 20110202
  Transmission Date: 20110831
  Serious: Yes (Other)
  Sender: FDA-Public Use
  Company Number: US-PFIZER INC-2011024460

PATIENT
  Sex: Male
  Weight: 104 kg

DRUGS (8)
  1. MULTI-VITAMINS [Concomitant]
     Dosage: UNK
  2. NEXIUM [Concomitant]
     Indication: GASTROOESOPHAGEAL REFLUX DISEASE
     Dosage: 40 MG, 1X/DAY
     Route: 048
  3. FLEXERIL [Suspect]
     Indication: MUSCLE RELAXANT THERAPY
     Dosage: 10 MG, 3X/DAY
     Route: 048
     Dates: start: 20110127
  4. CHANTIX [Suspect]
     Indication: SMOKING CESSATION THERAPY
     Dosage: 0.5 MG, 1X/DAY
     Route: 048
     Dates: start: 20110131
  5. CALCIUM [Concomitant]
     Dosage: UNK
  6. AUGMENTIN '125' [Suspect]
     Indication: NEOPLASM
     Dosage: 500/125
     Route: 048
     Dates: start: 20110127
  7. LOTREL [Concomitant]
     Indication: HYPERTENSION
     Dosage: 5/20
     Route: 048
  8. METHYLPREDNISOLONE [Suspect]
     Indication: MUSCLE RUPTURE
     Dosage: UNK
     Dates: start: 20110127

REACTIONS (1)
  - LIP BLISTER [None]
